FAERS Safety Report 4346266-8 (Version None)
Quarter: 2004Q1

REPORT INFORMATION
  Report Type: 
  Country: None (occurrence: None)
  Receive Date: 20040325
  Receipt Date: 20031218
  Transmission Date: 20041129
  Serious: No
  Sender: FDA-Public Use
  Company Number: USA030947894

PATIENT
  Age: 77 Year
  Sex: Female
  Weight: 68 kg

DRUGS (12)
  1. FORTEO [Suspect]
     Indication: OSTEOPOROSIS
     Dates: start: 20030701
  2. SINEMET [Concomitant]
  3. FIBER [Concomitant]
  4. MIRAPEX (MIRAPEX) [Concomitant]
  5. PREMARIN [Concomitant]
  6. FOSAMAX [Concomitant]
  7. POTASSIUM [Concomitant]
  8. WOMEN VITAMINS [Concomitant]
  9. PREVACID [Concomitant]
  10. TUMS (CALCIUM CARBONATE) [Concomitant]
  11. ACIDOPHILUS [Concomitant]
  12. FLORINEF [Concomitant]

REACTIONS (4)
  - ASTHENIA [None]
  - INJECTION SITE HAEMORRHAGE [None]
  - OVERDOSE [None]
  - RASH PRURITIC [None]
